FAERS Safety Report 23728330 (Version 1)
Quarter: 2024Q2

REPORT INFORMATION
  Report Type: Spontaneous
  Country: US (occurrence: US)
  Receive Date: 20240410
  Receipt Date: 20240410
  Transmission Date: 20240716
  Serious: Yes (Other)
  Sender: FDA-Public Use
  Company Number: US-PFIZER INC-PV202400039192

PATIENT
  Age: 71 Year
  Sex: Male
  Weight: 91.17 kg

DRUGS (1)
  1. MEKTOVI [Suspect]
     Active Substance: BINIMETINIB
     Indication: Neoplasm malignant
     Dosage: 45 MG, DAILY
     Route: 048
     Dates: start: 202403

REACTIONS (14)
  - Loss of consciousness [Unknown]
  - Haematochezia [Unknown]
  - Diarrhoea haemorrhagic [Unknown]
  - Restlessness [Unknown]
  - Heart rate increased [Unknown]
  - Dizziness [Unknown]
  - Off label use [Unknown]
  - Balance disorder [Unknown]
  - Weight decreased [Unknown]
  - Vomiting [Unknown]
  - Gingival swelling [Unknown]
  - Constipation [Unknown]
  - Nausea [Unknown]
  - Gingival ulceration [Unknown]

NARRATIVE: CASE EVENT DATE: 20240101
